FAERS Safety Report 7920163-0 (Version None)
Quarter: 2011Q4

REPORT INFORMATION
  Report Type: 
  Country: None (occurrence: None)
  Receive Date: 20111117
  Receipt Date: 20111107
  Transmission Date: 20120403
  Serious: Yes (Other)
  Sender: FDA-Public Use
  Company Number: US-BAYER-2011-042375

PATIENT
  Age: 29 Year
  Sex: Female
  Weight: 113.38 kg

DRUGS (8)
  1. ALBUTEROL [Concomitant]
     Indication: ASTHMA
     Dosage: UNK UNK, PRN
     Route: 055
  2. ADVAIR DISKUS 100/50 [Concomitant]
     Dosage: 25 MG, QD
     Route: 055
  3. ENABLEX [Concomitant]
     Dosage: 15 MG, HS
     Route: 055
  4. PROTONIX [Concomitant]
  5. YAZ [Suspect]
     Indication: CONTRACEPTION
     Dosage: UNK
     Dates: start: 20080101, end: 20090101
  6. HYDROXIZINE [Concomitant]
     Dosage: 10 MG, HS
  7. BACTRIM DS [Concomitant]
     Indication: KLEBSIELLA INFECTION
     Dosage: UNK
     Dates: start: 20090416
  8. TRIAMTERENE AND HYDROCHLOROTHIAZIDE [Concomitant]
     Dosage: 37.5 MG, QD

REACTIONS (4)
  - BILIARY DYSKINESIA [None]
  - GALLBLADDER DISORDER [None]
  - PAIN [None]
  - CHOLECYSTITIS [None]
